FAERS Safety Report 4620165-6 (Version None)
Quarter: 2005Q1

REPORT INFORMATION
  Report Type: 
  Country: None (occurrence: None)
  Receive Date: 20050324
  Receipt Date: 20050308
  Transmission Date: 20050727
  Serious: Yes (Other)
  Sender: FDA-Public Use
  Company Number: L05-ITA-01092-01

PATIENT
  Age: 60 Year
  Sex: Male

DRUGS (10)
  1. ESCITALOPRAM [Suspect]
     Indication: MAJOR DEPRESSION
     Dosage: 20  MG QD
  2. ESCITALOPRAM [Suspect]
     Indication: MAJOR DEPRESSION
     Dosage: 15 MG QD
  3. ESCITALOPRAM [Suspect]
     Indication: MAJOR DEPRESSION
     Dosage: 5 MG QD
  4. VENLAFAXINE HCL [Suspect]
     Indication: MAJOR DEPRESSION
     Dosage: 150 MG QD
  5. VENLAFAXINE [Suspect]
     Indication: MAJOR DEPRESSION
     Dosage: 100 MG QD
     Route: 048
  6. VENLAFAXINE [Suspect]
     Indication: MAJOR DEPRESSION
     Dosage: 37.5 MG QD PO
     Route: 048
  7. MIRTAZAPINE [Suspect]
     Indication: MAJOR DEPRESSION
     Dosage: 15 MG QD
     Route: 048
  8. MIRTAZAPINE [Suspect]
     Indication: MAJOR DEPRESSION
     Dosage: 7.5 MG QD PO
     Route: 048
  9. OMEPRAZOLE [Concomitant]
  10. IRBESARTAN [Concomitant]

REACTIONS (3)
  - DRUG INTERACTION [None]
  - EPISTAXIS [None]
  - RECTAL HAEMORRHAGE [None]
